FAERS Safety Report 19928434 (Version 2)
Quarter: 2021Q4

REPORT INFORMATION
  Report Type: Spontaneous
  Country: CH (occurrence: CH)
  Receive Date: 20211007
  Receipt Date: 20211021
  Transmission Date: 20220303
  Serious: Yes (Death)
  Sender: FDA-Public Use
  Company Number: CH-CELGENE-CHE-20211001203

PATIENT
  Age: 57 Year
  Sex: Female

DRUGS (2)
  1. ABRAXANE [Suspect]
     Active Substance: PACLITAXEL
     Indication: Breast cancer metastatic
     Dosage: 20 MILLIGRAM
     Route: 041
     Dates: start: 20210416
  2. PIQRAY [Concomitant]
     Active Substance: ALPELISIB
     Indication: Product used for unknown indication
     Route: 065
     Dates: start: 20201002, end: 20201027

REACTIONS (1)
  - Death [Fatal]

NARRATIVE: CASE EVENT DATE: 20210507
